FAERS Safety Report 22261518 (Version 2)
Quarter: 2024Q1

REPORT INFORMATION
  Report Type: Other
  Country: US (occurrence: None)
  Receive Date: 20230427
  Receipt Date: 20240214
  Transmission Date: 20240409
  Serious: Yes (Hospitalization)
  Sender: FDA-Public Use
  Company Number: US-ROCHE-3333157

PATIENT
  Age: 63 Year
  Sex: Female
  Weight: 92.616 kg

DRUGS (6)
  1. OCREVUS [Suspect]
     Active Substance: OCRELIZUMAB
     Indication: Primary progressive multiple sclerosis
     Dosage: ONGOING: YES
     Route: 042
     Dates: start: 202207
  2. OCREVUS [Suspect]
     Active Substance: OCRELIZUMAB
     Dosage: ONGOING YES
     Route: 042
     Dates: start: 202208
  3. ERGOCALCIFEROL [Concomitant]
     Active Substance: ERGOCALCIFEROL
  4. PEPCID [Concomitant]
     Active Substance: FAMOTIDINE
  5. METOPROLOL [Concomitant]
     Active Substance: METOPROLOL
  6. BACLOFEN [Concomitant]
     Active Substance: BACLOFEN

REACTIONS (7)
  - Decubitus ulcer [Recovering/Resolving]
  - Urinary tract infection [Recovered/Resolved]
  - Nephrolithiasis [Recovered/Resolved]
  - Immobile [Not Recovered/Not Resolved]
  - Hiatus hernia [Unknown]
  - Ill-defined disorder [Not Recovered/Not Resolved]
  - Off label use [Unknown]

NARRATIVE: CASE EVENT DATE: 20220801
